FAERS Safety Report 22356089 (Version 1)
Quarter: 2023Q2

REPORT INFORMATION
  Report Type: Spontaneous
  Country: US (occurrence: US)
  Receive Date: 20230523
  Receipt Date: 20230523
  Transmission Date: 20230721
  Serious: No
  Sender: FDA-Public Use
  Company Number: US-SA-SAC20230522001040

PATIENT
  Age: 68 Year
  Sex: Female

DRUGS (3)
  1. DUPIXENT [Suspect]
     Active Substance: DUPILUMAB
     Indication: Illness
     Dosage: 1 DF, QOW
     Route: 058
  2. EZETIMIBE [Concomitant]
     Active Substance: EZETIMIBE
     Dosage: UNK
  3. ADBRY [Concomitant]
     Active Substance: TRALOKINUMAB-LDRM
     Dosage: UNK

REACTIONS (2)
  - Arthralgia [Unknown]
  - Conjunctivitis [Unknown]

NARRATIVE: CASE EVENT DATE: 20230101
